FAERS Safety Report 15525645 (Version 1)
Quarter: 2018Q4

REPORT INFORMATION
  Report Type: Spontaneous
  Country: CL (occurrence: CL)
  Receive Date: 20181018
  Receipt Date: 20181018
  Transmission Date: 20190205
  Serious: Yes (Other)
  Sender: FDA-Public Use
  Company Number: CL-PROVELL PHARMACEUTICALS-2056327

PATIENT
  Sex: Female

DRUGS (3)
  1. EUTHYROX [Suspect]
     Active Substance: LEVOTHYROXINE SODIUM
  2. EUTHYROX [Suspect]
     Active Substance: LEVOTHYROXINE SODIUM
     Indication: HYPOTHYROIDISM
  3. EUTHYROX [Suspect]
     Active Substance: LEVOTHYROXINE SODIUM

REACTIONS (14)
  - Diarrhoea [None]
  - Weight decreased [None]
  - Thyroid cyst [None]
  - Hyperthyroidism [None]
  - Oophorectomy [None]
  - Feeling abnormal [None]
  - Feeling of despair [None]
  - Somnolence [None]
  - Hyperhidrosis [None]
  - Insomnia [None]
  - Tremor [None]
  - Tachycardia [None]
  - Anxiety [None]
  - Overdose [None]
